FAERS Safety Report 24180016 (Version 2)
Quarter: 2024Q3

REPORT INFORMATION
  Report Type: Spontaneous
  Country: JP (occurrence: JP)
  Receive Date: 20240806
  Receipt Date: 20240821
  Transmission Date: 20241016
  Serious: Yes (Death)
  Sender: AKEBIA THERAPEUTICS
  Company Number: JP-KERYX BIOPHARMACEUTICALS INC.-JP-AKEB-24-001181

PATIENT

DRUGS (1)
  1. VADADUSTAT [Suspect]
     Active Substance: VADADUSTAT
     Indication: Product used for unknown indication
     Dosage: UNK
     Route: 048

REACTIONS (1)
  - Chronic kidney disease [Fatal]
